FAERS Safety Report 21163513 (Version 1)
Quarter: 2022Q3

REPORT INFORMATION
  Report Type: Spontaneous
  Country: None (occurrence: VN)
  Receive Date: 20220802
  Receipt Date: 20220802
  Transmission Date: 20221027
  Serious: Yes (Life-Threatening, Hospitalization, Other)
  Sender: FDA-Public Use
  Company Number: VN-Nostrum Laboratories, Inc.-2131467

PATIENT
  Age: 8 Year
  Sex: Female

DRUGS (1)
  1. CARBAMAZEPINE [Suspect]
     Active Substance: CARBAMAZEPINE
     Indication: Epilepsy
     Route: 048

REACTIONS (7)
  - Toxic epidermal necrolysis [Recovering/Resolving]
  - Drug-induced liver injury [Recovered/Resolved]
  - Renal injury [Recovered/Resolved]
  - Coagulopathy [Recovered/Resolved]
  - Haematemesis [Recovered/Resolved]
  - Haematochezia [Recovered/Resolved]
  - Blood loss anaemia [Recovered/Resolved]
